FAERS Safety Report 7122443-8 (Version None)
Quarter: 2010Q4

REPORT INFORMATION
  Report Type: 
  Country: None (occurrence: None)
  Receive Date: 20101124
  Receipt Date: 20101118
  Transmission Date: 20110411
  Serious: Yes (Hospitalization)
  Sender: FDA-Public Use
  Company Number: CA-MERCK-1011USA02393

PATIENT
  Age: 74 Year
  Sex: Female

DRUGS (6)
  1. FOSAMAX PLUS D [Suspect]
     Indication: OSTEOPOROSIS
     Route: 048
  2. PROPRANOLOL HYDROCHLORIDE [Concomitant]
     Route: 065
  3. ELTROXIN [Concomitant]
     Route: 065
  4. VITAMIN D (UNSPECIFIED) [Concomitant]
     Route: 065
     Dates: end: 20100101
  5. CALCIUM (UNSPECIFIED) [Concomitant]
     Route: 065
     Dates: end: 20100101
  6. VITAMINS (UNSPECIFIED) [Concomitant]
     Route: 065
     Dates: end: 20100101

REACTIONS (1)
  - GASTROINTESTINAL STROMAL TUMOUR [None]
